FAERS Safety Report 16369841 (Version 1)
Quarter: 2019Q2

REPORT INFORMATION
  Report Type: Spontaneous
  Country: PL (occurrence: PL)
  Receive Date: 20190530
  Receipt Date: 20190530
  Transmission Date: 20190711
  Serious: Yes (Life-Threatening, Other)
  Sender: FDA-Public Use
  Company Number: PL-ACCORD-025656

PATIENT
  Age: 80 Year
  Sex: Male
  Weight: 77 kg

DRUGS (3)
  1. ETOPOSIDE EBEWE [Suspect]
     Active Substance: ETOPOSIDE
     Indication: LUNG CARCINOMA CELL TYPE UNSPECIFIED STAGE I
     Dosage: DAILY DOSE 180 MG
     Route: 042
     Dates: start: 20140814, end: 20140816
  2. ETOPOSIDE. [Suspect]
     Active Substance: ETOPOSIDE
     Indication: MALIGNANT RESPIRATORY TRACT NEOPLASM
     Route: 042
     Dates: start: 20140814, end: 20140816
  3. ACCORD CISPLATIN [Suspect]
     Active Substance: CISPLATIN
     Indication: LUNG CARCINOMA CELL TYPE UNSPECIFIED STAGE I
     Dosage: STRENGTH: DAILY DOSAGE 50 MG.
     Route: 042
     Dates: start: 20140814, end: 20140816

REACTIONS (5)
  - Vomiting [Unknown]
  - Asthenia [Unknown]
  - Dehydration [Unknown]
  - Diarrhoea [Unknown]
  - Leukopenia [Unknown]

NARRATIVE: CASE EVENT DATE: 20140826
